FAERS Safety Report 6997517-2 (Version None)
Quarter: 2010Q3

REPORT INFORMATION
  Report Type: 
  Country: None (occurrence: None)
  Receive Date: 20100918
  Receipt Date: 20091026
  Transmission Date: 20110219
  Serious: No
  Sender: FDA-Public Use
  Company Number: US-WYE-H11898309

PATIENT
  Sex: Male

DRUGS (7)
  1. PRISTIQ [Suspect]
     Indication: DEPRESSION
     Route: 048
     Dates: start: 20091012
  2. LASIX [Concomitant]
  3. JANUVIA [Concomitant]
  4. NEURONTIN [Concomitant]
  5. INSULIN [Concomitant]
  6. TOPROL-XL [Concomitant]
  7. COUMADIN [Concomitant]

REACTIONS (3)
  - DRY MOUTH [None]
  - FATIGUE [None]
  - HEADACHE [None]
